APPROVED DRUG PRODUCT: ORAPRED ODT
Active Ingredient: PREDNISOLONE SODIUM PHOSPHATE
Strength: EQ 15MG BASE
Dosage Form/Route: TABLET, ORALLY DISINTEGRATING;ORAL
Application: N021959 | Product #002
Applicant: ADVANZ PHARMA (US) CORP
Approved: Jun 1, 2006 | RLD: Yes | RS: No | Type: RX